FAERS Safety Report 6438944-1 (Version None)
Quarter: 2009Q4

REPORT INFORMATION
  Report Type: 
  Country: None (occurrence: None)
  Receive Date: 20091111
  Receipt Date: 20091111
  Transmission Date: 20100525
  Serious: No
  Sender: FDA-Public Use
  Company Number: None

PATIENT

DRUGS (1)
  1. TRAMADOL HCL [Suspect]
     Dates: start: 20091109, end: 20091110

REACTIONS (2)
  - INTERCEPTED MEDICATION ERROR [None]
  - PRODUCT PACKAGING ISSUE [None]
